FAERS Safety Report 5637229-0 (Version None)
Quarter: 2008Q1

REPORT INFORMATION
  Report Type: 
  Country: None (occurrence: None)
  Receive Date: 20080225
  Receipt Date: 20070122
  Transmission Date: 20080703
  Serious: No
  Sender: FDA-Public Use
  Company Number: US-BRISTOL-MYERS SQUIBB COMPANY-13651617

PATIENT

DRUGS (1)
  1. KENALOG [Suspect]
     Dosage: KENALOG 80 MG GIVEN IV INSTEAD OF IM
     Route: 042

REACTIONS (1)
  - DRUG ADMINISTRATION ERROR [None]
